FAERS Safety Report 9470588 (Version 2)
Quarter: 2013Q4

REPORT INFORMATION
  Report Type: Report from Study
  Country: CA (occurrence: CA)
  Receive Date: 20130822
  Receipt Date: 20131209
  Transmission Date: 20140711
  Serious: Yes (Other)
  Sender: FDA-Public Use
  Company Number: CA-SANOFI-AVENTIS-2013SA083753

PATIENT
  Age: 65 Year
  Sex: 0

DRUGS (4)
  1. ELOXATIN [Suspect]
     Indication: COLORECTAL CANCER
     Dosage: 15 CYCLES
     Route: 065
     Dates: start: 20120117, end: 20120710
  2. AVASTIN [Suspect]
     Indication: COLORECTAL CANCER
     Dosage: SOLUTION INTRAVENOUS, 15 CYCLES
     Route: 065
     Dates: start: 20120117, end: 20120710
  3. FLUOROURACIL [Suspect]
     Indication: COLORECTAL CANCER
     Dosage: 15 CYCLES
     Route: 065
     Dates: start: 20120117, end: 20120710
  4. LEUCOVORIN [Suspect]
     Indication: COLORECTAL CANCER
     Dosage: 15 CYCLES
     Route: 065
     Dates: start: 20120117, end: 20120710

REACTIONS (1)
  - Toxicity to various agents [Unknown]
